FAERS Safety Report 14482026 (Version 1)
Quarter: 2018Q1

REPORT INFORMATION
  Report Type: Spontaneous
  Country: US (occurrence: US)
  Receive Date: 20180202
  Receipt Date: 20180202
  Transmission Date: 20180509
  Serious: Yes (Death)
  Sender: FDA-Public Use
  Company Number: None

PATIENT
  Age: 73 Year
  Sex: Male

DRUGS (18)
  1. ASPIRIN. [Concomitant]
     Active Substance: ASPIRIN
  2. TAMSULOSIN [Concomitant]
     Active Substance: TAMSULOSIN
  3. LANTUS [Concomitant]
     Active Substance: INSULIN GLARGINE
  4. CULTURELLE [Concomitant]
     Active Substance: LACTOBACILLUS RHAMNOSUS
  5. COQ10 [Concomitant]
     Active Substance: UBIDECARENONE
  6. FERROUS SULF [Concomitant]
     Active Substance: FERROUS SULFATE
  7. PLAVIX [Concomitant]
     Active Substance: CLOPIDOGREL BISULFATE
  8. ATORVASTATIN [Concomitant]
     Active Substance: ATORVASTATIN
  9. PRANDIN [Concomitant]
     Active Substance: REPAGLINIDE
  10. VITAMIN C [Concomitant]
     Active Substance: ASCORBIC ACID
  11. LIPITOR [Concomitant]
     Active Substance: ATORVASTATIN CALCIUM
  12. HUMATROPE [Concomitant]
     Active Substance: SOMATROPIN
  13. ENALAPRIL [Concomitant]
     Active Substance: ENALAPRIL
  14. LUPRON DEPOT [Suspect]
     Active Substance: LEUPROLIDE ACETATE
     Indication: PROSTATE CANCER
     Dosage: OTHER FREQUENCY:Q 6 MONTHS;?
     Route: 030
     Dates: start: 20161011
  15. METOPROLOL TARTRATE. [Concomitant]
     Active Substance: METOPROLOL TARTRATE
  16. FIRMAGON [Concomitant]
     Active Substance: DEGARELIX ACETATE
  17. CLOPIDOGREL [Concomitant]
     Active Substance: CLOPIDOGREL BISULFATE
  18. VITAMIN B COMPLEX [Concomitant]
     Active Substance: CYANOCOBALAMIN\DEXPANTHENOL\NIACINAMIDE\PYRIDOXINE HYDROCHLORIDE\RIBOFLAVIN 5^-PHOSPHATE SODIUM\THIAMINE HYDROCHLORIDE\VITAMIN B COMPLEX

REACTIONS (1)
  - Death [None]

NARRATIVE: CASE EVENT DATE: 20170911
